FAERS Safety Report 5257308-X (Version None)
Quarter: 2007Q1

REPORT INFORMATION
  Report Type: 
  Country: None (occurrence: None)
  Receive Date: 20070305
  Receipt Date: 20070222
  Transmission Date: 20070707
  Serious: Yes (Other)
  Sender: FDA-Public Use
  Company Number: 2006-03269

PATIENT
  Age: 54 Year
  Sex: Female
  Weight: 44 kg

DRUGS (7)
  1. VELCADE [Suspect]
     Indication: T-CELL LYMPHOMA
     Dosage: 2.10 MG, INTRAVENOUS
     Route: 042
     Dates: start: 20060309, end: 20060406
  2. CYCLOPHOSPHAMIDE [Suspect]
     Indication: T-CELL LYMPHOMA
     Dosage: 1700.00 MG, INTRAVENOUS
     Route: 042
     Dates: start: 20060309, end: 20060406
  3. DOXORUBICIN HCL [Suspect]
     Indication: T-CELL LYMPHOMA
     Dosage: 110.00 MG, INTRAVENOUS
     Route: 042
     Dates: start: 20060309, end: 20060406
  4. ELDISINE [Suspect]
     Indication: T-CELL LYMPHOMA
     Dosage: 2.80 MG, INTRAVENOUS
     Route: 042
     Dates: start: 20060309, end: 20060406
  5. BLEOMYCIN [Suspect]
     Indication: T-CELL LYMPHOMA
     Dosage: 10.00 MG, INTRAVENOUS
     Route: 042
     Dates: start: 20060309, end: 20060406
  6. PREDNISONE [Suspect]
     Indication: T-CELL LYMPHOMA
     Dosage: 120.00 MG
     Dates: start: 20060309, end: 20060406
  7. GRANOCYTE 13-34 (LENOGRASTIM) INJECTION, 150MG/M2 [Suspect]
     Indication: T-CELL LYMPHOMA
     Dosage: SUBCUTANEOUS
     Route: 058
     Dates: start: 20060314, end: 20060403

REACTIONS (1)
  - SKIN HYPERPIGMENTATION [None]
